FAERS Safety Report 9424125 (Version 1)
Quarter: 2013Q3

REPORT INFORMATION
  Report Type: Spontaneous
  Country: US (occurrence: US)
  Receive Date: 20130729
  Receipt Date: 20130729
  Transmission Date: 20140515
  Serious: Yes (Hospitalization)
  Sender: FDA-Public Use
  Company Number: US-BRISTOL-MYERS SQUIBB COMPANY-19118512

PATIENT
  Age: 88 Year
  Sex: Female
  Weight: 49.89 kg

DRUGS (8)
  1. COUMADIN [Suspect]
     Indication: THROMBOSIS
     Dates: start: 2002
  2. WARFARIN SODIUM [Suspect]
  3. COREG [Concomitant]
  4. SYNTHROID [Concomitant]
  5. ALTACE [Concomitant]
  6. LASIX [Concomitant]
  7. POTASSIUM [Concomitant]
  8. PERCOCET [Concomitant]

REACTIONS (2)
  - Cardiac failure congestive [Unknown]
  - International normalised ratio fluctuation [Unknown]
